FAERS Safety Report 6370921-1 (Version None)
Quarter: 2009Q3

REPORT INFORMATION
  Report Type: 
  Country: None (occurrence: None)
  Receive Date: 20090923
  Receipt Date: 20070625
  Transmission Date: 20100115
  Serious: Yes (Hospitalization, Other)
  Sender: FDA-Public Use
  Company Number: US-ASTRAZENECA-2006UW23545

PATIENT
  Age: 22682 Day
  Sex: Female
  Weight: 92.1 kg

DRUGS (22)
  1. SEROQUEL [Suspect]
     Dosage: 100-200 MG
     Route: 048
     Dates: start: 19991014, end: 20040109
  2. STELAZINE [Concomitant]
  3. SYNTHROID [Concomitant]
     Dosage: 0.05- 0.5 MG
     Route: 065
  4. KLOR-CON [Concomitant]
     Dosage: 10 - 20 MG
     Route: 065
  5. TRAZODONE [Concomitant]
     Dosage: 100 - 150 MG
     Route: 065
  6. PREVACID [Concomitant]
     Dosage: 30 - 60 MG
     Route: 065
  7. TEMAZEPAM [Concomitant]
     Dosage: 7.5 - 30 MG
     Route: 065
  8. BENTYL [Concomitant]
     Dosage: 10 - 80 MG
     Route: 065
  9. BENICAR [Concomitant]
     Dosage: 20 - 200 MG
     Route: 065
  10. NEURONTIN [Concomitant]
     Dosage: 400 - 1200 MG
     Route: 065
  11. HYDROCHLOROTHIAZIDE [Concomitant]
     Dosage: 25 - 50 MG
     Route: 065
  12. TESSALON [Concomitant]
     Indication: COUGH
     Route: 065
  13. LOMOTIL [Concomitant]
     Indication: DIARRHOEA
     Dosage: 0.025 - 2.5 MG
     Route: 065
  14. ATENOLOL [Concomitant]
     Dosage: 50 - 100 MG
     Route: 065
  15. NORVASC [Concomitant]
     Route: 065
  16. CATAPRES [Concomitant]
     Route: 065
  17. DIOVAN [Concomitant]
     Dosage: 160/25 MG
     Route: 065
  18. LIPRAM [Concomitant]
     Route: 065
  19. LOTREL [Concomitant]
     Dosage: 5/ 20 MG
     Route: 065
  20. SLOW FE [Concomitant]
     Route: 065
  21. CYPROHEPTADINE [Concomitant]
     Dosage: 4 MG HALF TABLET TWICE DAILY
     Route: 065
  22. AMITRIPTYLINE [Concomitant]
     Route: 065

REACTIONS (4)
  - ARTHRALGIA [None]
  - HYPERGLYCAEMIA [None]
  - PANCREATITIS [None]
  - PANCREATITIS ACUTE [None]
